FAERS Safety Report 20901246 (Version 1)
Quarter: 2022Q2

REPORT INFORMATION
  Report Type: Spontaneous
  Country: US (occurrence: None)
  Receive Date: 20220601
  Receipt Date: 20220601
  Transmission Date: 20220721
  Serious: No
  Sender: FDA-Public Use
  Company Number: None

PATIENT
  Age: 61 Year
  Sex: Female

DRUGS (1)
  1. HUMIRA [Suspect]
     Active Substance: ADALIMUMAB
     Indication: Vitamin D deficiency
     Dosage: FREQUENCY : WEEKLY;?
     Route: 058
     Dates: start: 201712

REACTIONS (2)
  - Urinary tract infection [None]
  - Therapy interrupted [None]
